FAERS Safety Report 10556946 (Version 3)
Quarter: 2015Q1

REPORT INFORMATION
  Report Type: Spontaneous
  Country: IT (occurrence: IT)
  Receive Date: 20141031
  Receipt Date: 20150115
  Transmission Date: 20150720
  Serious: Yes (Death)
  Sender: FDA-Public Use
  Company Number: IT-SA-2014SA137010

PATIENT
  Age: 83 Year
  Sex: Male
  Weight: 80 kg

DRUGS (15)
  1. KETOPROFEN. [Concomitant]
     Active Substance: KETOPROFEN
  2. CARDIOASPIRIN [Concomitant]
     Active Substance: ASPIRIN
     Route: 048
     Dates: start: 20130101, end: 20140914
  3. ARTROSILENE [Concomitant]
     Active Substance: KETOPROFEN
     Indication: PAIN
     Route: 030
     Dates: start: 20140914, end: 20140918
  4. TALOFEN [Concomitant]
     Active Substance: PROMAZINE HYDROCHLORIDE
     Indication: PSYCHOMOTOR HYPERACTIVITY
     Route: 030
     Dates: start: 20140921, end: 20140921
  5. SEVORANE [Concomitant]
     Active Substance: SEVOFLURANE
     Indication: GENERAL ANAESTHESIA
     Route: 055
     Dates: start: 20140917, end: 20140917
  6. CLEXANE [Suspect]
     Active Substance: ENOXAPARIN SODIUM
     Indication: THROMBOSIS PROPHYLAXIS
     Route: 058
     Dates: start: 20140917, end: 20140921
  7. CLEXANE [Suspect]
     Active Substance: ENOXAPARIN SODIUM
     Indication: THROMBOSIS PROPHYLAXIS
     Dosage: 4000 IU, 2 TIMES/DAY
     Route: 058
     Dates: start: 20140915, end: 20140917
  8. TAZOCIN [Concomitant]
     Active Substance: PIPERACILLIN SODIUM\TAZOBACTAM SODIUM
     Indication: CHOLECYSTITIS ACUTE
     Route: 042
     Dates: start: 20140914, end: 20140918
  9. DILTIAZEM HYDROCHLORIDE. [Concomitant]
     Active Substance: DILTIAZEM HYDROCHLORIDE
     Indication: HYPERTENSION
     Route: 048
     Dates: start: 20140101, end: 20140917
  10. DILTIAZEM HYDROCHLORIDE. [Concomitant]
     Active Substance: DILTIAZEM HYDROCHLORIDE
     Indication: HYPERTENSION
     Route: 048
     Dates: start: 20140918, end: 20140921
  11. SERENASE [Concomitant]
     Active Substance: HALOPERIDOL
     Indication: PSYCHOMOTOR HYPERACTIVITY
     Route: 030
     Dates: start: 20140921, end: 20140921
  12. SELOKEN [Concomitant]
     Active Substance: METOPROLOL
     Indication: CARDIAC FIBRILLATION
     Route: 042
     Dates: start: 20140917, end: 20140917
  13. VALIUM [Concomitant]
     Active Substance: DIAZEPAM
     Indication: PSYCHOMOTOR HYPERACTIVITY
     Dates: start: 20140921, end: 20140921
  14. CORDARONE [Concomitant]
     Active Substance: AMIODARONE HYDROCHLORIDE
     Indication: CARDIAC FIBRILLATION
     Route: 042
     Dates: start: 20140917, end: 20140917
  15. PROPOFOL. [Concomitant]
     Active Substance: PROPOFOL
     Indication: INDUCTION OF ANAESTHESIA
     Dates: start: 20140917, end: 20140917

REACTIONS (9)
  - Anuria [Fatal]
  - Coma [Fatal]
  - Brain midline shift [Fatal]
  - Cerebral ventricle collapse [Fatal]
  - Hypotension [Fatal]
  - Cardiac arrest [Fatal]
  - Cerebral haemorrhage [Fatal]
  - Subdural haematoma [Fatal]
  - Tachyarrhythmia [Fatal]

NARRATIVE: CASE EVENT DATE: 20140921
